FAERS Safety Report 10522554 (Version 1)
Quarter: 2014Q4

REPORT INFORMATION
  Report Type: Spontaneous
  Country: US (occurrence: US)
  Receive Date: 20141016
  Receipt Date: 20141016
  Transmission Date: 20150528
  Serious: No
  Sender: FDA-Public Use
  Company Number: US-BAYER-2014-148782

PATIENT
  Age: 50 Year
  Sex: Female

DRUGS (1)
  1. FINACEA [Suspect]
     Active Substance: AZELAIC ACID
     Indication: ROSACEA
     Dosage: UNK
     Dates: start: 20140919

REACTIONS (5)
  - Pain of skin [None]
  - Thermal burn [None]
  - Oral mucosal eruption [None]
  - Condition aggravated [None]
  - Pruritus [None]
